FAERS Safety Report 7964605-3 (Version None)
Quarter: 2011Q4

REPORT INFORMATION
  Report Type: 
  Country: None (occurrence: None)
  Receive Date: 20111206
  Receipt Date: 20111124
  Transmission Date: 20120403
  Serious: Yes (Life-Threatening, Hospitalization)
  Sender: FDA-Public Use
  Company Number: 2011-4789

PATIENT
  Age: 64 Year
  Sex: Female

DRUGS (1)
  1. SOMATULINE DEPOT [Suspect]
     Indication: ACROMEGALY
     Dosage: 120 MG (120 MG, 1 IN 28 D), INTRAMUSCULAR
     Route: 030
     Dates: start: 20071008

REACTIONS (4)
  - GENERAL PHYSICAL HEALTH DETERIORATION [None]
  - HYPOPHAGIA [None]
  - MALNUTRITION [None]
  - DEPRESSED LEVEL OF CONSCIOUSNESS [None]
